FAERS Safety Report 5246907-7 (Version None)
Quarter: 2007Q1

REPORT INFORMATION
  Report Type: 
  Country: None (occurrence: None)
  Receive Date: 20070226
  Receipt Date: 20070220
  Transmission Date: 20070707
  Serious: Yes (Other)
  Sender: FDA-Public Use
  Company Number: ES-ROXANE LABORATORIES, INC-2007-BP-02477RO

PATIENT
  Age: 32 Year
  Sex: Male

DRUGS (3)
  1. ZIDOVUDINE [Suspect]
     Indication: HIV INFECTION
     Route: 048
     Dates: start: 19980301
  2. INDINIVIR SULFATE [Suspect]
     Indication: HIV INFECTION
     Route: 048
     Dates: start: 19980301
  3. LAMIVUDINE [Suspect]
     Indication: HIV INFECTION
     Route: 048
     Dates: start: 19980301

REACTIONS (8)
  - ANOREXIA [None]
  - ASTHENIA [None]
  - COUGH [None]
  - CUTANEOUS SARCOIDOSIS [None]
  - DYSPNOEA [None]
  - PULMONARY SARCOIDOSIS [None]
  - RASH PAPULAR [None]
  - SUBCUTANEOUS NODULE [None]
